FAERS Safety Report 5376058-2 (Version None)
Quarter: 2007Q3

REPORT INFORMATION
  Report Type: 
  Country: None (occurrence: None)
  Receive Date: 20070702
  Receipt Date: 20070627
  Transmission Date: 20080115
  Serious: Yes (Hospitalization)
  Sender: FDA-Public Use
  Company Number: US-AMGEN-US231511

PATIENT
  Sex: Female

DRUGS (1)
  1. ENBREL [Suspect]
     Indication: RHEUMATOID ARTHRITIS
     Dates: start: 20030901

REACTIONS (5)
  - BALANCE DISORDER [None]
  - EPISTAXIS [None]
  - HYPOTENSION [None]
  - PULMONARY OEDEMA [None]
  - PYREXIA [None]
